FAERS Safety Report 4800093-3 (Version None)
Quarter: 2005Q4

REPORT INFORMATION
  Report Type: 
  Country: None (occurrence: None)
  Receive Date: 20051012
  Receipt Date: 20051012
  Transmission Date: 20060501
  Serious: Yes (Hospitalization)
  Sender: FDA-Public Use
  Company Number: None

PATIENT
  Sex: Female

DRUGS (4)
  1. NAPROSYN [Suspect]
     Indication: PAIN
     Dosage: PO [PRIOR TO ADMISSION]
     Route: 048
  2. BENADRYL [Concomitant]
  3. KLONOPIN [Concomitant]
  4. TYLENOL W/ CODEINE [Concomitant]

REACTIONS (3)
  - FEELING HOT [None]
  - FLUSHING [None]
  - VISUAL DISTURBANCE [None]
